FAERS Safety Report 10027541 (Version 2)
Quarter: 2014Q2

REPORT INFORMATION
  Report Type: Spontaneous
  Country: US (occurrence: US)
  Receive Date: 20140321
  Receipt Date: 20140416
  Transmission Date: 20141212
  Serious: No
  Sender: FDA-Public Use
  Company Number: US-PFIZER INC-2014079483

PATIENT
  Age: 76 Year
  Sex: Female

DRUGS (2)
  1. GLIPIZIDE XL [Suspect]
     Indication: BLOOD GLUCOSE ABNORMAL
     Dosage: 10 MG, DAILY
     Route: 048
  2. GLIPIZIDE XL [Suspect]
     Indication: DIABETES MELLITUS

REACTIONS (5)
  - Drug dispensing error [Unknown]
  - Abdominal pain upper [Unknown]
  - Nausea [Unknown]
  - Medication residue present [Unknown]
  - Drug ineffective [Unknown]
